FAERS Safety Report 9090977 (Version 2)
Quarter: 2013Q2

REPORT INFORMATION
  Report Type: Spontaneous
  Country: US (occurrence: US)
  Receive Date: 20130131
  Receipt Date: 20130408
  Transmission Date: 20140414
  Serious: Yes (Death)
  Sender: FDA-Public Use
  Company Number: PHEH2013US002538

PATIENT
  Age: 68 Year
  Sex: Male

DRUGS (12)
  1. GLEEVEC [Suspect]
     Dosage: 400 MG, UNK
  2. REGORAFENIB [Suspect]
     Dosage: 4 DF, FOR 3 WEEKS AND 1 WEEK OFF
     Route: 048
  3. ZOLPIDEM [Concomitant]
     Dosage: UNK UKN, UNK
  4. FUROSEMIDE [Concomitant]
     Dosage: 20 MG, UNK
  5. ONDANSETRON [Concomitant]
     Dosage: 4 MG, UNK
  6. GABAPENTIN [Concomitant]
     Dosage: 100 MG, UNK
  7. SMZ-TMP [Concomitant]
     Dosage: UNK UKN, UNK
  8. IBUPROFEN [Concomitant]
     Dosage: 200 MG, UNK
  9. EPZICOM [Concomitant]
     Dosage: UNK UKN, UNK
  10. NEUPOGEN [Concomitant]
     Dosage: 300 UG, UNK
  11. VIREAD [Concomitant]
     Dosage: 150 MG, UNK
  12. HYDROCODONE/ACETAMINOPHEN          /00607101/ [Concomitant]
     Dosage: UNK UKN, UNK

REACTIONS (1)
  - Death [Fatal]
